FAERS Safety Report 13879019 (Version 1)
Quarter: 2017Q3

REPORT INFORMATION
  Report Type: Spontaneous
  Country: US (occurrence: US)
  Receive Date: 20170817
  Receipt Date: 20170817
  Transmission Date: 20171127
  Serious: Yes (Other)
  Sender: FDA-Public Use
  Company Number: US-MYLANLABS-2017M1050538

PATIENT

DRUGS (6)
  1. POMALIDOMIDE [Suspect]
     Active Substance: POMALIDOMIDE
     Dosage: DOSE INCREASED TO 4MG (5 CYCLES)
     Route: 065
     Dates: start: 201309
  2. ASPIRIN                            /00002701/ [Concomitant]
     Active Substance: ASPIRIN
     Indication: PROPHYLAXIS
     Route: 065
  3. DEXAMETHASONE. [Suspect]
     Active Substance: DEXAMETHASONE
     Indication: PLASMA CELL MYELOMA
     Dosage: 5 CYCLES
     Route: 065
     Dates: start: 201309
  4. CARFILZOMIB [Suspect]
     Active Substance: CARFILZOMIB
     Indication: PLASMA CELL MYELOMA
     Dosage: 5 CYCLES
     Route: 065
     Dates: start: 201309
  5. POMALIDOMIDE [Suspect]
     Active Substance: POMALIDOMIDE
     Indication: PLASMA CELL MYELOMA
     Dosage: INITIALLY 2MG, LATER ON INCREASED TO 4MG (5 CYCLES)
     Route: 065
     Dates: start: 201309
  6. CYCLOPHOSPHAMIDE. [Suspect]
     Active Substance: CYCLOPHOSPHAMIDE
     Indication: PLASMA CELL MYELOMA
     Route: 065
     Dates: start: 201309

REACTIONS (4)
  - Anaemia [Unknown]
  - Febrile neutropenia [Unknown]
  - Neutropenia [Unknown]
  - Thrombocytopenia [Unknown]
